FAERS Safety Report 5254047-6 (Version None)
Quarter: 2007Q1

REPORT INFORMATION
  Report Type: 
  Country: None (occurrence: None)
  Receive Date: 20070302
  Receipt Date: 20070216
  Transmission Date: 20070707
  Serious: Yes (Other)
  Sender: FDA-Public Use
  Company Number: US-AMGEN-US212213

PATIENT
  Age: 82 Year
  Sex: Female

DRUGS (1)
  1. PROCRIT [Suspect]
     Indication: PREOPERATIVE CARE

REACTIONS (1)
  - MYOCARDIAL INFARCTION [None]
